FAERS Safety Report 8489802-2 (Version None)
Quarter: 2012Q3

REPORT INFORMATION
  Report Type: 
  Country: None (occurrence: None)
  Receive Date: 20120705
  Receipt Date: 20120628
  Transmission Date: 20120928
  Serious: Yes (Other)
  Sender: FDA-Public Use
  Company Number: CH-UCBSA-060793

PATIENT
  Sex: Female

DRUGS (4)
  1. VIMPAT [Suspect]
     Indication: EPILEPSY
     Route: 048
  2. VIMPAT [Suspect]
     Route: 048
  3. VIMPAT [Suspect]
     Dosage: UPTITRATING DOSE
     Route: 048
  4. TEGRETOL [Concomitant]
     Indication: EPILEPSY
     Dosage: TOTAL DAILY DOSE:400 MG
     Route: 048

REACTIONS (3)
  - TACHYCARDIA [None]
  - BONE PAIN [None]
  - ARRHYTHMIA [None]
